FAERS Safety Report 7353234-0 (Version None)
Quarter: 2011Q1

REPORT INFORMATION
  Report Type: 
  Country: None (occurrence: None)
  Receive Date: 20110315
  Receipt Date: 20110303
  Transmission Date: 20110831
  Serious: Yes (Hospitalization)
  Sender: FDA-Public Use
  Company Number: US-WATSON-2011-03073

PATIENT
  Age: 15 Year
  Sex: Male

DRUGS (5)
  1. ISOFLURANE [Suspect]
     Indication: ORAL SURGERY
     Dosage: UNK
  2. ONDANSETRON [Suspect]
     Indication: ORAL SURGERY
     Dosage: UNK
  3. PANCURONIUM BROMIDE [Suspect]
     Indication: ORAL SURGERY
     Dosage: UNK
  4. ANTICHOLINERGICS [Suspect]
     Indication: ORAL SURGERY
     Dosage: UNK
  5. SEVOFLURANE [Suspect]
     Indication: ORAL SURGERY
     Dosage: UNK

REACTIONS (2)
  - POTENTIATING DRUG INTERACTION [None]
  - TACHYCARDIA [None]
